FAERS Safety Report 9093186 (Version 1)
Quarter: 2013Q1

REPORT INFORMATION
  Report Type: Spontaneous
  Country: US (occurrence: US)
  Receive Date: 20130201
  Receipt Date: 20130201
  Transmission Date: 20140127
  Serious: Yes (Other)
  Sender: FDA-Public Use
  Company Number: US-PFIZER INC-2013038851

PATIENT
  Age: 33 Year
  Sex: Female
  Weight: 90.7 kg

DRUGS (4)
  1. ESTROGENS CONJUGATED [Suspect]
     Indication: HORMONE REPLACEMENT THERAPY
     Dosage: UNK, DAILY
     Dates: start: 2010, end: 2010
  2. ESTROGENS CONJUGATED [Suspect]
     Indication: ENDOMETRIOSIS
  3. MEDROXYPROGESTERONE ACETATE [Suspect]
     Indication: ENDOMETRIOSIS
     Dosage: UNK, DAILY
     Dates: start: 2010, end: 2010
  4. MEDROXYPROGESTERONE ACETATE [Suspect]
     Indication: HORMONE REPLACEMENT THERAPY

REACTIONS (1)
  - Vision blurred [Recovered/Resolved]
